FAERS Safety Report 7096568-X (Version None)
Quarter: 2010Q4

REPORT INFORMATION
  Report Type: 
  Country: None (occurrence: None)
  Receive Date: 20101111
  Receipt Date: 20101104
  Transmission Date: 20110411
  Serious: Yes (Hospitalization, Disabling)
  Sender: FDA-Public Use
  Company Number: B0682760A

PATIENT
  Sex: Female
  Weight: 56 kg

DRUGS (9)
  1. SERETIDE [Suspect]
     Indication: PRODUCT USED FOR UNKNOWN INDICATION
     Dosage: 1000MCG THREE TIMES PER DAY
     Route: 055
     Dates: start: 20100101, end: 20101001
  2. CORTANCYL [Suspect]
     Indication: ALLERGIC GRANULOMATOUS ANGIITIS
     Dosage: 60MG PER DAY
     Route: 048
     Dates: start: 20100701
  3. CRESTOR [Concomitant]
     Dosage: 10MG PER DAY
  4. PIASCLEDINE [Concomitant]
     Dosage: 1TAB PER DAY
  5. METEOXANE [Concomitant]
     Dosage: 2TAB THREE TIMES PER DAY
  6. NASONEX [Concomitant]
     Indication: COUGH
  7. AEROSOL [Concomitant]
     Indication: COUGH
  8. VENTOLIN [Concomitant]
  9. ACTONEL [Concomitant]

REACTIONS (8)
  - DEMYELINATION [None]
  - EXTRAPYRAMIDAL DISORDER [None]
  - GRANULOMA SKIN [None]
  - INFECTION [None]
  - PROGRESSIVE MULTIFOCAL LEUKOENCEPHALOPATHY [None]
  - PURPURA [None]
  - VESTIBULAR DISORDER [None]
  - WEIGHT DECREASED [None]
